FAERS Safety Report 7950307-6 (Version None)
Quarter: 2011Q4

REPORT INFORMATION
  Report Type: 
  Country: None (occurrence: None)
  Receive Date: 20111130
  Receipt Date: 20111117
  Transmission Date: 20120403
  Serious: Yes (Other)
  Sender: FDA-Public Use
  Company Number: US-BAYER-2011-050347

PATIENT
  Age: 16 Year
  Sex: Female
  Weight: 46 kg

DRUGS (5)
  1. YAZ [Suspect]
     Indication: PREMENSTRUAL SYNDROME
  2. YAZ [Suspect]
  3. YAZ [Suspect]
     Indication: ACNE
     Dosage: UNK
     Dates: start: 20090101
  4. DOXYCYCLINE [Concomitant]
  5. CALCIUM CARBONATE [Concomitant]
     Indication: DYSPEPSIA
     Dosage: UNK UNK, TIW
     Route: 048
     Dates: start: 20090101, end: 20100101

REACTIONS (5)
  - DYSPEPSIA [None]
  - VOMITING [None]
  - PAIN [None]
  - INJURY [None]
  - CHOLELITHIASIS [None]
